FAERS Safety Report 17537043 (Version 1)
Quarter: 2020Q1

REPORT INFORMATION
  Report Type: Spontaneous
  Country: SE (occurrence: SE)
  Receive Date: 20200313
  Receipt Date: 20200313
  Transmission Date: 20200409
  Serious: Yes (Life-Threatening, Other)
  Sender: FDA-Public Use
  Company Number: SE-ACCORD-116136

PATIENT
  Age: 68 Year
  Sex: Male
  Weight: 75 kg

DRUGS (1)
  1. FINASTERIDE. [Suspect]
     Active Substance: FINASTERIDE
     Indication: PROSTATOMEGALY
     Dosage: 5 MG 1X1
     Route: 048
     Dates: start: 201606, end: 201703

REACTIONS (5)
  - Breast cancer male [Recovered/Resolved with Sequelae]
  - Alopecia [Recovered/Resolved with Sequelae]
  - Product communication issue [Unknown]
  - Hormone level abnormal [Recovered/Resolved with Sequelae]
  - Metastases to lymph nodes [Recovered/Resolved with Sequelae]

NARRATIVE: CASE EVENT DATE: 2016
